FAERS Safety Report 25789842 (Version 1)
Quarter: 2025Q3

REPORT INFORMATION
  Report Type: Spontaneous
  Country: US (occurrence: US)
  Receive Date: 20250911
  Receipt Date: 20250911
  Transmission Date: 20251020
  Serious: No
  Sender: BIOVITRUM
  Company Number: US-BIOVITRUM-2025-US-011563

PATIENT
  Age: 49 Year
  Sex: Male

DRUGS (1)
  1. DOPTELET [Suspect]
     Active Substance: AVATROMBOPAG MALEATE
     Indication: Immune thrombocytopenia
     Route: 048
     Dates: end: 202508

REACTIONS (6)
  - Product use issue [Unknown]
  - Intentional dose omission [Unknown]
  - Platelet count decreased [Unknown]
  - Sneezing [Unknown]
  - Conjunctival haemorrhage [Unknown]
  - Ocular hyperaemia [Unknown]
